FAERS Safety Report 5328430-4 (Version None)
Quarter: 2007Q2

REPORT INFORMATION
  Report Type: 
  Country: None (occurrence: None)
  Receive Date: 20070518
  Receipt Date: 20070509
  Transmission Date: 20071010
  Serious: Yes (Other)
  Sender: FDA-Public Use
  Company Number: US-ASTRAZENECA-2007UW11157

PATIENT
  Age: 17 Year
  Sex: Male

DRUGS (4)
  1. SEROQUEL [Suspect]
     Route: 048
  2. SEROQUEL [Suspect]
     Dosage: 10 TO 12 (300 MG) TABLETS
     Route: 048
     Dates: start: 20070505, end: 20070505
  3. WELLBUTRIN [Suspect]
  4. DEPAKOTE [Suspect]

REACTIONS (1)
  - OVERDOSE [None]
